FAERS Safety Report 13241917 (Version 2)
Quarter: 2017Q1

REPORT INFORMATION
  Report Type: Spontaneous
  Country: US (occurrence: US)
  Receive Date: 20170217
  Receipt Date: 20170331
  Transmission Date: 20170428
  Serious: No
  Sender: FDA-Public Use
  Company Number: US-PFIZER INC-2017070479

PATIENT
  Age: 69 Year
  Sex: Female

DRUGS (29)
  1. ESTRADIOL. [Concomitant]
     Active Substance: ESTRADIOL
     Dosage: UNK (FREQUENCY: 1 X 1)
  2. POLYETHYLENE GLYCOL [Concomitant]
     Active Substance: POLYETHYLENE GLYCOLS
     Dosage: 1 DF, DAILY (STRENGTH: 3350 NF; FREQUENCY: 1 CAPFUL DAILY)
  3. MAGNESIUM [Concomitant]
     Active Substance: MAGNESIUM
     Dosage: UNK UNK, 4X/DAY (FREQUENCY: 1 X 1)
  4. ASPIRIN. [Concomitant]
     Active Substance: ASPIRIN
     Dosage: UNK (FREQUENCY:1 X 2 PER WK)
  5. POTASSIUM CL [Concomitant]
     Active Substance: POTASSIUM CHLORIDE
     Dosage: UNK (FREQUENCY: 1 X 3 - 1/2 X 4 PER WK)
  6. SERTRALINE HCL [Concomitant]
     Active Substance: SERTRALINE HYDROCHLORIDE
     Dosage: UNK (FREQUENCY: 1 X 1)
  7. SPIRONOLACTONE. [Concomitant]
     Active Substance: SPIRONOLACTONE
     Dosage: UNK UNK, WEEKLY (FREQUENCY: 1 1/2 X 5 AND 2 X 2 PER WK)
  8. FISH OIL [Concomitant]
     Active Substance: FISH OIL
     Dosage: UNK (FREQUENCY: 1 X 2)
  9. XELJANZ XR [Suspect]
     Active Substance: TOFACITINIB CITRATE
     Indication: RHEUMATOID ARTHRITIS
     Dosage: 11 MG, DAILY
  10. TERAZOSIN [Concomitant]
     Active Substance: TERAZOSIN\TERAZOSIN HYDROCHLORIDE
     Dosage: UNK (FREQUENCY: 1X)
  11. VALACYCLOVIR [Concomitant]
     Active Substance: VALACYCLOVIR HYDROCHLORIDE
     Dosage: UNK (FREQUENCY: 1/2 X 1)
  12. ALLOPURINOL. [Concomitant]
     Active Substance: ALLOPURINOL
     Dosage: UNK (FREQUENCY: 1/2 X 1)
  13. CARBAMAZEPINE. [Concomitant]
     Active Substance: CARBAMAZEPINE
     Dosage: UNK (FREQUENCY:1 X 2)
  14. FOLIC ACID. [Concomitant]
     Active Substance: FOLIC ACID
     Dosage: UNK (FREQUENCY: 4 X 1)
  15. TIZANIDINE. [Concomitant]
     Active Substance: TIZANIDINE
     Dosage: UNK (FREQUENCY: 1 X 1)
  16. FUROSEMIDE. [Concomitant]
     Active Substance: FUROSEMIDE
     Dosage: UNK (FREQUENCY: 1 X 1)
  17. LEVOTHYROXINE. [Concomitant]
     Active Substance: LEVOTHYROXINE
     Dosage: UNK (FREQUENCY: 1 X 1)
  18. PROLIA [Concomitant]
     Active Substance: DENOSUMAB
     Dosage: UNK (FREQUENCY: 1 X 6 MO)
  19. RANITIDINE. [Concomitant]
     Active Substance: RANITIDINE
     Dosage: UNK (FREQUENCY: 1 X 1)
  20. BIOTIN [Concomitant]
     Active Substance: BIOTIN
     Dosage: UNK (FREQUENCY: 1 X 1)
  21. VITAMIN B12 [Concomitant]
     Active Substance: CYANOCOBALAMIN
     Dosage: UNK (FREQUENCY: 1 X 1)
  22. PERI-COLACE [Concomitant]
     Active Substance: CASANTHRANOL\DOCUSATE SODIUM
     Dosage: UNK (FREQUENCY: 1 X 2)
  23. HYDROXYCHLOROQUINE [Concomitant]
     Active Substance: HYDROXYCHLOROQUINE
     Dosage: UNK (FREQUENCY: 1 X 2)
  24. OMEPRAZOLE. [Concomitant]
     Active Substance: OMEPRAZOLE
     Dosage: UNK (FREQUENCY: 1 X 1)
  25. CALCITRIOL. [Concomitant]
     Active Substance: CALCITRIOL
     Dosage: UNK (FREQUENCY: 1 X 1)
  26. METHOTREXATE. [Concomitant]
     Active Substance: METHOTREXATE
     Dosage: UNK UNK, WEEKLY (STRENGTH OF MEDICATION: 6 CC, 1 PER WK)
  27. PROAIR HFA [Concomitant]
     Active Substance: ALBUTEROL SULFATE
     Dosage: 2 DF, AS NEEDED
     Route: 055
  28. ADVAIR HFA [Concomitant]
     Active Substance: FLUTICASONE PROPIONATE\SALMETEROL XINAFOATE
     Dosage: 1 DF, UNK (STRENGTH: 500/50, 1 PUFF X2)
  29. ATENOLOL. [Concomitant]
     Active Substance: ATENOLOL
     Dosage: 25 MG, UNK (FREQUENCY: 1 TAB X 1)

REACTIONS (1)
  - Peripheral swelling [Recovered/Resolved]

NARRATIVE: CASE EVENT DATE: 201610
